FAERS Safety Report 25149768 (Version 1)
Quarter: 2025Q2

REPORT INFORMATION
  Report Type: Spontaneous
  Country: US (occurrence: None)
  Receive Date: 20250401
  Receipt Date: 20250401
  Transmission Date: 20250717
  Serious: Yes (Death)
  Sender: FDA-CTU
  Company Number: None

PATIENT
  Age: 93 Year
  Sex: Female

DRUGS (12)
  1. PROLIA [Suspect]
     Active Substance: DENOSUMAB
     Indication: Osteoporosis
     Route: 058
     Dates: start: 20231009
  2. LOSARTAN POTASSIUM [Concomitant]
     Active Substance: LOSARTAN POTASSIUM
  3. OMEPRAZOLE DR 40 MG CAP [Concomitant]
  4. ALBUTEROL 0.83%(2.5MG/3ML)25X3ML [Concomitant]
  5. AMLODIPINE BESYLATE [Concomitant]
     Active Substance: AMLODIPINE BESYLATE
  6. COLACE 100MGCAPSULES [Concomitant]
  7. GLYCOPYRROLATE [Concomitant]
     Active Substance: GLYCOPYRROLATE
  8. LEVEMIR.FLEXPEN.INJECTION.3ML [Concomitant]
  9. LEVOTHYROXINE 0.05MG (50MCG)CAPS [Concomitant]
  10. METFORMIN HYDROCHLORIDE [Concomitant]
     Active Substance: METFORMIN HYDROCHLORIDE
  11. NITROGLYCERIN 0.4MG SUB TAB 25S [Concomitant]
  12. VITAMIN D3 1OOO TABLETS [Concomitant]

REACTIONS (1)
  - Death [None]
